FAERS Safety Report 18139247 (Version 3)
Quarter: 2021Q1

REPORT INFORMATION
  Report Type: Report from Study
  Country: US (occurrence: US)
  Receive Date: 20200812
  Receipt Date: 20210301
  Transmission Date: 20210419
  Serious: Yes (Death, Hospitalization)
  Sender: FDA-Public Use
  Company Number: US-EMD SERONO-9172451

PATIENT
  Age: 72 Year
  Sex: Female

DRUGS (2)
  1. MAVENCLAD [Suspect]
     Active Substance: CLADRIBINE
     Indication: MULTIPLE SCLEROSIS
     Dosage: YEAR ONE MONTH ONE TREATMENT.
     Route: 048
     Dates: start: 20200526
  2. MAVENCLAD [Suspect]
     Active Substance: CLADRIBINE
     Dosage: YEAR ONE MONTH TWO TREATMENT.
     Route: 048
     Dates: end: 20200628

REACTIONS (10)
  - Limb discomfort [Unknown]
  - General physical health deterioration [Unknown]
  - Anaemia [Unknown]
  - Fall [Not Recovered/Not Resolved]
  - Renal failure [Unknown]
  - Dehydration [Not Recovered/Not Resolved]
  - Blood calcium increased [Unknown]
  - Dementia [Unknown]
  - Pneumonia [Unknown]
  - Death [Fatal]

NARRATIVE: CASE EVENT DATE: 2020
